FAERS Safety Report 7881783-5 (Version None)
Quarter: 2011Q4

REPORT INFORMATION
  Report Type: 
  Country: None (occurrence: None)
  Receive Date: 20111101
  Receipt Date: 20110527
  Transmission Date: 20120403
  Serious: No
  Sender: FDA-Public Use
  Company Number: US-AMGEN-USASP2011027770

PATIENT
  Age: 51 Year
  Sex: Female

DRUGS (1)
  1. ENBREL [Suspect]
     Indication: RHEUMATOID ARTHRITIS
     Dosage: 50 MG, QWK
     Dates: start: 20110125

REACTIONS (9)
  - NODULE [None]
  - URTICARIA [None]
  - LOCAL SWELLING [None]
  - MOBILITY DECREASED [None]
  - BUNION [None]
  - OEDEMA PERIPHERAL [None]
  - INDURATION [None]
  - PAIN IN EXTREMITY [None]
  - PRURITUS [None]
